FAERS Safety Report 25204451 (Version 4)
Quarter: 2025Q3

REPORT INFORMATION
  Report Type: Report from Study
  Country: JP (occurrence: JP)
  Receive Date: 20250416
  Receipt Date: 20250919
  Transmission Date: 20251021
  Serious: Yes (Hospitalization)
  Sender: ELI LILLY AND COMPANY
  Company Number: JP-ELI_LILLY_AND_COMPANY-JP202504011823AA

PATIENT
  Age: 81 Year
  Sex: Female
  Weight: 52 kg

DRUGS (3)
  1. KISUNLA [Suspect]
     Active Substance: DONANEMAB-AZBT
     Indication: Cognitive disorder
     Route: 041
     Dates: start: 20250116, end: 20250321
  2. KISUNLA [Suspect]
     Active Substance: DONANEMAB-AZBT
     Route: 041
     Dates: start: 20250410
  3. DONEPEZIL [Concomitant]
     Active Substance: DONEPEZIL
     Indication: Cognitive disorder

REACTIONS (2)
  - Pyrexia [Recovering/Resolving]
  - Infusion related reaction [Recovering/Resolving]

NARRATIVE: CASE EVENT DATE: 20250410
